FAERS Safety Report 20449244 (Version 1)
Quarter: 2022Q1

REPORT INFORMATION
  Report Type: Spontaneous
  Country: US (occurrence: US)
  Receive Date: 20220209
  Receipt Date: 20220209
  Transmission Date: 20220423
  Serious: No
  Sender: FDA-Public Use
  Company Number: US-SA-SAC20220204000342

PATIENT
  Age: 67 Year
  Sex: Female

DRUGS (17)
  1. DUPIXENT [Suspect]
     Active Substance: DUPILUMAB
     Indication: Prurigo
     Dosage: 300 MG, QOW
     Route: 058
     Dates: start: 20211221
  2. AMLODIPINE [Concomitant]
     Active Substance: AMLODIPINE BESYLATE
  3. ESOMEPRAZOLE [Concomitant]
     Active Substance: ESOMEPRAZOLE
  4. FENOFIBRATE [Concomitant]
     Active Substance: FENOFIBRATE
  5. FLUCONAZOLE [Concomitant]
     Active Substance: FLUCONAZOLE
  6. GABAPENTIN [Concomitant]
     Active Substance: GABAPENTIN
  7. HYDROXYZINE [Concomitant]
     Active Substance: HYDROXYZINE HYDROCHLORIDE
  8. LEVEMIR [Concomitant]
     Active Substance: INSULIN DETEMIR
     Dosage: FLEX SOP 100UNIT
  9. LISINOPRIL [Concomitant]
     Active Substance: LISINOPRIL
     Dosage: 0-25MG
  10. METFORMIN HYDROCHLORIDE [Concomitant]
     Active Substance: METFORMIN HYDROCHLORIDE
  11. METOPROLOL [Concomitant]
     Active Substance: METOPROLOL
     Dosage: TB2 100MG
  12. MONTELUKAST [Concomitant]
     Active Substance: MONTELUKAST SODIUM
  13. OXYBUTYNIN [Concomitant]
     Active Substance: OXYBUTYNIN
     Dosage: TB2 15MG
  14. SIMVASTATIN [Concomitant]
     Active Substance: SIMVASTATIN
  15. TIZANIDINE [Concomitant]
     Active Substance: TIZANIDINE
  16. BETAMETHASONE [Concomitant]
     Active Substance: BETAMETHASONE
  17. LEVOTHYROXINE [Concomitant]
     Active Substance: LEVOTHYROXINE

REACTIONS (1)
  - Bronchitis [Unknown]

NARRATIVE: CASE EVENT DATE: 20220101
